FAERS Safety Report 6118693-X (Version None)
Quarter: 2009Q1

REPORT INFORMATION
  Report Type: 
  Country: None (occurrence: None)
  Receive Date: 20090314
  Receipt Date: 20090224
  Transmission Date: 20090719
  Serious: No
  Sender: FDA-Public Use
  Company Number: US-ABBOTT-09P-163-0559503-00

PATIENT
  Sex: Female
  Weight: 52.664 kg

DRUGS (7)
  1. HUMIRA [Suspect]
     Indication: RHEUMATOID ARTHRITIS
     Route: 058
     Dates: start: 20061201, end: 20071201
  2. HUMIRA [Suspect]
     Route: 058
     Dates: start: 20080801
  3. ARTHROTEC [Concomitant]
     Indication: ARTHRALGIA
     Route: 048
  4. TYLENOL W/ CODEINE NO. 4 [Concomitant]
     Indication: PAIN
     Dosage: HALF A TABLET TWICE A DAY
     Route: 048
  5. CHLORAXAZONE [Concomitant]
     Indication: MUSCLE RELAXANT THERAPY
     Dosage: UNKNOWN
     Route: 048
  6. ACIPHEX [Concomitant]
     Indication: GASTROOESOPHAGEAL REFLUX DISEASE
     Route: 048
  7. PREMPRO [Concomitant]
     Indication: MENOPAUSAL SYMPTOMS
     Dosage: UNKNOWN
     Route: 048

REACTIONS (2)
  - ARTHRALGIA [None]
  - DRUG INEFFECTIVE [None]
